FAERS Safety Report 8046902-9 (Version None)
Quarter: 2012Q1

REPORT INFORMATION
  Report Type: 
  Country: None (occurrence: None)
  Receive Date: 20120116
  Receipt Date: 20120104
  Transmission Date: 20120608
  Serious: Yes (Hospitalization, Other)
  Sender: FDA-Public Use
  Company Number: US-ELI_LILLY_AND_COMPANY-US201007005839

PATIENT
  Sex: Female

DRUGS (13)
  1. ASPIRIN [Concomitant]
     Dosage: UNK, QD
  2. CALCIUM W/VITAMIN D NOS [Concomitant]
     Dosage: UNK, QD
  3. TYLENOL                                 /SCH/ [Concomitant]
     Indication: PAIN
     Dosage: UNK, PRN
  4. LISINOPRIL [Concomitant]
     Dosage: UNK, QD
  5. DOCUSATE [Concomitant]
     Indication: ABNORMAL FAECES
     Dosage: UNK, QD
  6. FORTEO [Suspect]
     Indication: OSTEOPOROSIS
     Dosage: 20 UG, DAILY (1/D)
  7. NITROGLYCERIN [Concomitant]
     Dosage: UNK, PRN
  8. ALPRAZOLAM [Concomitant]
     Dosage: UNK, PRN
  9. BISOPROLOL FUMARATE [Concomitant]
     Dosage: UNK, QD
  10. FAMOTIDINE [Concomitant]
     Dosage: UNK, QD
  11. FOLTX [Concomitant]
     Dosage: UNK, QD
  12. PRAVASTATIN [Concomitant]
     Dosage: UNK, QD
  13. COUMADIN [Concomitant]
     Dosage: 4 MG, QD

REACTIONS (6)
  - AORTIC VALVE STENOSIS [None]
  - DIARRHOEA [None]
  - FUNCTIONAL GASTROINTESTINAL DISORDER [None]
  - POST PROCEDURAL COMPLICATION [None]
  - HEARING IMPAIRED [None]
  - VASCULAR GRAFT [None]
